FAERS Safety Report 5606246-9 (Version None)
Quarter: 2008Q1

REPORT INFORMATION
  Report Type: 
  Country: None (occurrence: None)
  Receive Date: 20080129
  Receipt Date: 20070316
  Transmission Date: 20080703
  Serious: No
  Sender: FDA-Public Use
  Company Number: A0643559A

PATIENT
  Age: 32 Year
  Sex: Female

DRUGS (2)
  1. WELLBUTRIN [Suspect]
     Indication: DEPRESSION
     Route: 048
  2. PROZAC [Concomitant]

REACTIONS (1)
  - BREAST DISCHARGE [None]
